FAERS Safety Report 5621804-3 (Version None)
Quarter: 2008Q1

REPORT INFORMATION
  Report Type: 
  Country: None (occurrence: None)
  Receive Date: 20080211
  Receipt Date: 20080205
  Transmission Date: 20080703
  Serious: Yes (Life-Threatening, Hospitalization)
  Sender: FDA-Public Use
  Company Number: PHEH2007US16039

PATIENT
  Age: 74 Year
  Sex: Female

DRUGS (6)
  1. SANDOSTATIN [Suspect]
     Indication: INSULINOMA
     Dosage: UNK MCG, TID
     Route: 058
     Dates: start: 20071201
  2. LASIX [Concomitant]
  3. POTASSIUM CHLORIDE [Concomitant]
  4. ALLOPURINOL [Concomitant]
  5. DYAZIDE [Concomitant]
  6. ACTONEL [Concomitant]

REACTIONS (3)
  - BLOOD GLUCOSE DECREASED [None]
  - BLOOD GLUCOSE FLUCTUATION [None]
  - LOSS OF CONSCIOUSNESS [None]
